FAERS Safety Report 13073788 (Version 1)
Quarter: 2016Q4

REPORT INFORMATION
  Report Type: Spontaneous
  Country: FR (occurrence: FR)
  Receive Date: 20161229
  Receipt Date: 20161229
  Transmission Date: 20170207
  Serious: Yes (Hospitalization, Other)
  Sender: FDA-Public Use
  Company Number: FR-PFIZER INC-2016600081

PATIENT
  Age: 29 Year
  Sex: Female

DRUGS (2)
  1. SOLU-MEDROL [Suspect]
     Active Substance: METHYLPREDNISOLONE SODIUM SUCCINATE
     Dosage: 1 G, SINGLE
     Route: 040
     Dates: start: 201611, end: 201611
  2. SOLU-MEDROL [Suspect]
     Active Substance: METHYLPREDNISOLONE SODIUM SUCCINATE
     Indication: MULTIPLE SCLEROSIS
     Dosage: 1 G, SINGLE
     Route: 040
     Dates: start: 201610, end: 201610

REACTIONS (7)
  - Jaundice [Unknown]
  - Diarrhoea [Unknown]
  - Toxicity to various agents [Unknown]
  - Cell death [Unknown]
  - Hepatitis acute [Not Recovered/Not Resolved]
  - Nausea [Unknown]
  - Cholelithiasis [Unknown]

NARRATIVE: CASE EVENT DATE: 201611
